FAERS Safety Report 15445902 (Version 1)
Quarter: 2018Q3

REPORT INFORMATION
  Report Type: Spontaneous
  Country: US (occurrence: US)
  Receive Date: 20180928
  Receipt Date: 20180928
  Transmission Date: 20181010
  Serious: No
  Sender: FDA-Public Use
  Company Number: US-AMGEN-USASP2018071639

PATIENT
  Age: 71 Year
  Sex: Female

DRUGS (2)
  1. CENTRUM [Concomitant]
     Active Substance: VITAMINS
     Dosage: UNK UNK, BID
  2. PROLIA [Suspect]
     Active Substance: DENOSUMAB
     Indication: BONE DENSITY ABNORMAL
     Dosage: 60 MG, Q6MO
     Route: 065
     Dates: start: 2016

REACTIONS (7)
  - Back pain [Recovered/Resolved]
  - Rash papular [Recovered/Resolved]
  - Laryngitis [Unknown]
  - Myalgia [Recovered/Resolved]
  - Cough [Unknown]
  - Pain in extremity [Unknown]
  - Off label use [Unknown]

NARRATIVE: CASE EVENT DATE: 201804
